FAERS Safety Report 9376407 (Version 1)
Quarter: 2013Q3

REPORT INFORMATION
  Report Type: Spontaneous
  Country: US (occurrence: US)
  Receive Date: 20130701
  Receipt Date: 20130701
  Transmission Date: 20140515
  Serious: No
  Sender: FDA-Public Use
  Company Number: US-JNJFOC-20130607782

PATIENT
  Age: 47 Year
  Sex: Male

DRUGS (5)
  1. INVEGA SUSTENNA [Suspect]
     Indication: SCHIZOPHRENIA
     Route: 030
     Dates: start: 201301
  2. TOPAMAX [Concomitant]
     Route: 048
  3. COGENTIN [Concomitant]
     Route: 065
  4. OXCARBAZEPINE [Concomitant]
     Route: 065
  5. TRAZODONE [Concomitant]
     Route: 065

REACTIONS (1)
  - Delusion [Unknown]
